FAERS Safety Report 22002625 (Version 2)
Quarter: 2023Q1

REPORT INFORMATION
  Report Type: Spontaneous
  Country: JP (occurrence: JP)
  Receive Date: 20230217
  Receipt Date: 20230222
  Transmission Date: 20230418
  Serious: Yes (Death, Hospitalization, Other)
  Sender: FDA-Public Use
  Company Number: JP-PFIZER INC-PV202300029625

PATIENT
  Age: 47 Year
  Sex: Female

DRUGS (8)
  1. MEROPENEM [Suspect]
     Active Substance: MEROPENEM
     Indication: Idiopathic interstitial pneumonia
     Dosage: UNK
     Route: 041
  2. THIOTEPA [Suspect]
     Active Substance: THIOTEPA
     Indication: Diffuse large B-cell lymphoma
     Dosage: UNK
     Route: 041
  3. BUSULFAN [Suspect]
     Active Substance: BUSULFAN
     Dosage: UNK
     Route: 065
  4. CYCLOPHOSPHAMIDE [Suspect]
     Active Substance: CYCLOPHOSPHAMIDE
     Dosage: UNK
     Route: 065
  5. DEFITELIO [Concomitant]
     Active Substance: DEFIBROTIDE SODIUM
     Dosage: UNK
  6. MICAFUNGIN SODIUM [Concomitant]
     Active Substance: MICAFUNGIN SODIUM
     Dosage: UNK
  7. AMPHOTERICIN B [Concomitant]
     Active Substance: AMPHOTERICIN B
     Dosage: UNK
  8. METHYLPREDNISOLONE [Concomitant]
     Active Substance: METHYLPREDNISOLONE
     Dosage: UNK

REACTIONS (10)
  - Acute respiratory failure [Fatal]
  - Idiopathic interstitial pneumonia [Recovering/Resolving]
  - Gastrointestinal mucosal disorder [Unknown]
  - Mucosal disorder [Unknown]
  - Cytomegalovirus enterocolitis [Unknown]
  - Venoocclusive liver disease [Unknown]
  - Herpes zoster [Unknown]
  - Skin exfoliation [Recovering/Resolving]
  - Blister [Unknown]
  - Skin exfoliation [Unknown]
